FAERS Safety Report 4873372-1 (Version None)
Quarter: 2005Q4

REPORT INFORMATION
  Report Type: 
  Country: None (occurrence: None)
  Receive Date: 20051201
  Receipt Date: 20050709
  Transmission Date: 20060501
  Serious: No
  Sender: FDA-Public Use
  Company Number: 2005PV000340

PATIENT
  Age: 66 Year
  Sex: Female
  Weight: 98.4306 kg

DRUGS (8)
  1. BYETTA [Suspect]
     Indication: DIABETES MELLITUS NON-INSULIN-DEPENDENT
     Dosage: 5 MCG; BID; SC
     Route: 058
     Dates: start: 20050707, end: 20050710
  2. ACTOS [Concomitant]
  3. NOVOLOG [Concomitant]
  4. DIOVAN [Concomitant]
  5. COREG [Concomitant]
  6. SYNTHROID [Concomitant]
  7. PRAVACHOL [Concomitant]
  8. LANTUS [Concomitant]

REACTIONS (7)
  - ASTHENIA [None]
  - DIZZINESS [None]
  - DYSPEPSIA [None]
  - FATIGUE [None]
  - MALAISE [None]
  - NAUSEA [None]
  - VOMITING [None]
